FAERS Safety Report 10029570 (Version 1)
Quarter: 2014Q1

REPORT INFORMATION
  Report Type: Spontaneous
  Country: CN (occurrence: CN)
  Receive Date: 20140322
  Receipt Date: 20140322
  Transmission Date: 20141002
  Serious: Yes (Hospitalization)
  Sender: FDA-Public Use
  Company Number: CN-009507513-1403CHN008805

PATIENT
  Age: 78 Year
  Sex: Male

DRUGS (2)
  1. PROSCAR [Suspect]
     Indication: BENIGN PROSTATIC HYPERPLASIA
     Dosage: 5 MG, QD
     Route: 048
     Dates: start: 201401
  2. PROSCAR [Suspect]
     Dosage: 5 MG, QD
     Route: 048
     Dates: start: 2010

REACTIONS (3)
  - Ear disorder [Unknown]
  - Haematuria [Recovered/Resolved]
  - Prostatomegaly [Unknown]
